FAERS Safety Report 23749005 (Version 1)
Quarter: 2024Q2

REPORT INFORMATION
  Report Type: Spontaneous
  Country: US (occurrence: US)
  Receive Date: 20240416
  Receipt Date: 20240416
  Transmission Date: 20240716
  Serious: No
  Sender: FDA-Public Use
  Company Number: US-VER-202400005

PATIENT
  Age: 47 Year
  Sex: Female
  Weight: 52 kg

DRUGS (1)
  1. TRELSTAR [Suspect]
     Active Substance: TRIPTORELIN PAMOATE
     Indication: Breast cancer metastatic
     Route: 065
     Dates: start: 2018

REACTIONS (7)
  - Atrophy [Unknown]
  - Illness [Unknown]
  - Product prescribing issue [Unknown]
  - Premature menopause [Unknown]
  - Off label use [Unknown]
  - Nightmare [Unknown]
  - Pelvic floor dysfunction [Unknown]

NARRATIVE: CASE EVENT DATE: 20180101
